FAERS Safety Report 25073114 (Version 1)
Quarter: 2025Q1

REPORT INFORMATION
  Report Type: Spontaneous
  Country: US (occurrence: US)
  Receive Date: 20250313
  Receipt Date: 20250313
  Transmission Date: 20250408
  Serious: No
  Sender: AMGEN
  Company Number: US-AMGEN-USASP2025045441

PATIENT
  Age: 41 Year
  Sex: Female

DRUGS (3)
  1. TEPROTUMUMAB [Suspect]
     Active Substance: TEPROTUMUMAB
     Indication: Endocrine ophthalmopathy
     Dosage: UNK MILLIGRAM/KILOGRAM 8 TIMES, Q3WK
     Route: 040
  2. METHIMAZOLE [Concomitant]
     Active Substance: METHIMAZOLE
  3. LOSARTAN [Concomitant]
     Active Substance: LOSARTAN

REACTIONS (2)
  - Weight decreased [Unknown]
  - Muscle spasms [Unknown]
